FAERS Safety Report 14283190 (Version 1)
Quarter: 2017Q4

REPORT INFORMATION
  Report Type: Spontaneous
  Country: IN (occurrence: IN)
  Receive Date: 20171213
  Receipt Date: 20171213
  Transmission Date: 20180321
  Serious: Yes (Other)
  Sender: FDA-Public Use
  Company Number: PHHY2017IN178743

PATIENT
  Age: 22 Year
  Sex: Female

DRUGS (1)
  1. RIFAMPICIN+ISONIAZID+PYRAZINAMIDE+ETHAMBUTOL HYDROCHLORIDE [Suspect]
     Active Substance: ETHAMBUTOL HYDROCHLORIDE\ISONIAZID\PYRAZINAMIDE\RIFAMPIN
     Indication: ENCAPSULATING PERITONEAL SCLEROSIS
     Route: 065

REACTIONS (2)
  - Hepatitis [Unknown]
  - Intestinal obstruction [Recovering/Resolving]
